FAERS Safety Report 23290307 (Version 1)
Quarter: 2023Q4

REPORT INFORMATION
  Report Type: Report from Study
  Country: JP (occurrence: JP)
  Receive Date: 20231213
  Receipt Date: 20231213
  Transmission Date: 20240109
  Serious: Yes (Other)
  Sender: FDA-Public Use
  Company Number: JP-TAKEDA-2023TJP016584

PATIENT
  Age: 59 Year
  Sex: Female
  Weight: 64 kg

DRUGS (13)
  1. VONICOG ALFA [Suspect]
     Active Substance: VONICOG ALFA
     Indication: Haemostasis
     Dosage: UNK
     Route: 065
     Dates: start: 20221021
  2. VONICOG ALFA [Suspect]
     Active Substance: VONICOG ALFA
     Indication: Haemorrhagic diathesis
     Dosage: 1300 INTERNATIONAL UNIT, SINGLE
     Route: 065
     Dates: start: 20221028, end: 20221028
  3. VONICOG ALFA [Suspect]
     Active Substance: VONICOG ALFA
     Dosage: 2600 INTERNATIONAL UNIT, SINGLE
     Route: 065
     Dates: start: 20221116, end: 20221116
  4. VONICOG ALFA [Suspect]
     Active Substance: VONICOG ALFA
     Dosage: 2600 INTERNATIONAL UNIT, SINGLE
     Route: 065
     Dates: start: 20230613, end: 20230613
  5. VONICOG ALFA [Suspect]
     Active Substance: VONICOG ALFA
     Dosage: 2600 INTERNATIONAL UNIT, SINGLE
     Route: 065
     Dates: start: 20230621, end: 20230621
  6. VONICOG ALFA [Suspect]
     Active Substance: VONICOG ALFA
     Dosage: 2600 INTERNATIONAL UNIT, SINGLE
     Route: 065
     Dates: start: 20230710, end: 20230710
  7. VONICOG ALFA [Suspect]
     Active Substance: VONICOG ALFA
     Dosage: 2600 INTERNATIONAL UNIT, SINGLE
     Route: 065
     Dates: start: 20230711, end: 20230711
  8. VONICOG ALFA [Suspect]
     Active Substance: VONICOG ALFA
     Dosage: 2600 INTERNATIONAL UNIT, SINGLE
     Route: 065
     Dates: start: 20230912, end: 20230912
  9. VONICOG ALFA [Suspect]
     Active Substance: VONICOG ALFA
     Dosage: 2600 INTERNATIONAL UNIT, 1/WEEK
     Route: 065
     Dates: start: 20221216, end: 20230630
  10. VONICOG ALFA [Suspect]
     Active Substance: VONICOG ALFA
     Dosage: 2600 INTERNATIONAL UNIT, 1/WEEK
     Route: 065
     Dates: start: 20230721, end: 20230831
  11. VONICOG ALFA [Suspect]
     Active Substance: VONICOG ALFA
     Dosage: 2600 INTERNATIONAL UNIT, 1/WEEK
     Route: 065
     Dates: start: 20230929, end: 20231110
  12. PREDONINE [Concomitant]
     Active Substance: PREDNISOLONE
     Indication: Product used for unknown indication
     Dosage: UNK
     Route: 065
  13. ELIQUIS [Concomitant]
     Active Substance: APIXABAN
     Indication: Product used for unknown indication
     Dosage: UNK
     Route: 065

REACTIONS (1)
  - Spinal compression fracture [Recovering/Resolving]

NARRATIVE: CASE EVENT DATE: 20230718
